FAERS Safety Report 10251606 (Version 1)
Quarter: 2014Q2

REPORT INFORMATION
  Report Type: Spontaneous
  Country: DE (occurrence: DE)
  Receive Date: 20140623
  Receipt Date: 20140623
  Transmission Date: 20141212
  Serious: Yes (Hospitalization)
  Sender: FDA-Public Use
  Company Number: DE-AMGEN INC.-DEUSP2014046170

PATIENT
  Age: 69 Year
  Sex: Male

DRUGS (24)
  1. NEULASTA [Suspect]
     Indication: B-CELL LYMPHOMA
     Dosage: 100 MG, 1 IN 3 WK
     Route: 048
     Dates: start: 20120118
  2. NEULASTA [Suspect]
     Indication: NEUTROPENIA
     Dosage: UNK
     Route: 065
     Dates: start: 20120510, end: 20120510
  3. OBINUTUZUMAB [Suspect]
     Indication: B-CELL LYMPHOMA
     Dosage: 04 MG/ML, 1 IN 3 WK
     Route: 042
     Dates: start: 20120118
  4. CYCLOPHOSPHAMIDE [Suspect]
     Indication: B-CELL LYMPHOMA
     Dosage: 1440 MG, 1 IN 3WK
     Route: 042
     Dates: start: 20120119
  5. DOXORUBICIN [Suspect]
     Indication: B-CELL LYMPHOMA
     Dosage: 96 MG, 1 IN 3 WK
     Route: 042
     Dates: start: 20120119
  6. VINCRISTINE [Suspect]
     Indication: B-CELL LYMPHOMA
     Dosage: 2 MG, 1 IN 3 WK
     Route: 042
     Dates: start: 20120119
  7. ORPHOL [Concomitant]
     Dosage: UNK
  8. OTRIVEN [Concomitant]
     Indication: NASAL CONGESTION
     Dosage: UNK
  9. ALLOPURINOL [Concomitant]
     Indication: AZOTAEMIA
     Dosage: UNK
     Dates: start: 20120109
  10. PANTOZOL                           /01263204/ [Concomitant]
     Indication: GASTRODUODENAL ULCER
     Dosage: UNK
  11. TOREM                              /01036501/ [Concomitant]
     Indication: RENAL FAILURE
     Dosage: UNK
     Dates: start: 20120114
  12. KALINOR                            /00279301/ [Concomitant]
     Dosage: UNK
     Dates: start: 20120116
  13. CIPROBAY                           /00697201/ [Concomitant]
     Dosage: UNK
     Dates: start: 20120121
  14. COTRIM FORTE [Concomitant]
     Indication: URINARY TRACT INFECTION
     Dosage: UNK
     Dates: start: 20120121
  15. CEFTAZIDIME [Concomitant]
     Indication: URINARY TRACT INFECTION
     Dosage: UNK
     Dates: start: 20120423, end: 20120427
  16. CEFTAZIDIME [Concomitant]
     Indication: PYREXIA
     Dosage: UNK
     Dates: start: 20120515, end: 20120524
  17. CEFTAZIDIME [Concomitant]
     Indication: PNEUMONIA
  18. ACICLOVIR [Concomitant]
     Dosage: UNK
     Dates: start: 20120208
  19. TAVEGIL                            /00137202/ [Concomitant]
     Indication: HYPERSENSITIVITY
     Dosage: UNK
     Dates: start: 20120503, end: 20120503
  20. ZOFRAN                             /00955301/ [Concomitant]
     Indication: NAUSEA
     Dosage: UNK
     Dates: start: 20120504, end: 20120504
  21. ZOFRAN                             /00955301/ [Concomitant]
     Indication: VOMITING
  22. DEXAMETHASON                       /00016001/ [Concomitant]
     Indication: PAIN
     Dosage: UNK
     Dates: start: 20120504, end: 20120504
  23. FORTUM                             /00559701/ [Concomitant]
     Dosage: UNK
     Dates: start: 20120515, end: 20120524
  24. ROXIHEXAL [Concomitant]
     Indication: URINARY TRACT INFECTION
     Dosage: UNK
     Dates: start: 20120516, end: 20120524

REACTIONS (4)
  - Pneumonia [Recovered/Resolved]
  - Anaemia [Recovered/Resolved]
  - Febrile neutropenia [Recovered/Resolved]
  - Gastritis [Recovered/Resolved]
